FAERS Safety Report 13355105 (Version 1)
Quarter: 2017Q1

REPORT INFORMATION
  Report Type: Spontaneous
  Country: US (occurrence: US)
  Receive Date: 20170321
  Receipt Date: 20170321
  Transmission Date: 20170429
  Serious: No
  Sender: FDA-Public Use
  Company Number: US-BAYER-2017-053338

PATIENT
  Age: 18 Year
  Sex: Female
  Weight: 54 kg

DRUGS (2)
  1. MIRALAX [Suspect]
     Active Substance: POLYETHYLENE GLYCOL 3350
     Indication: GASTROINTESTINAL DISORDER
     Dosage: 1 DF, QD
     Route: 048
     Dates: start: 201701, end: 201703
  2. MIRALAX [Suspect]
     Active Substance: POLYETHYLENE GLYCOL 3350
     Indication: CONSTIPATION

REACTIONS (5)
  - Nausea [Recovered/Resolved]
  - Drug ineffective [Unknown]
  - Product use issue [Unknown]
  - Maternal exposure during pregnancy [None]
  - Vomiting [Recovered/Resolved]

NARRATIVE: CASE EVENT DATE: 201701
